FAERS Safety Report 8585078-6 (Version None)
Quarter: 2012Q3

REPORT INFORMATION
  Report Type: 
  Country: None (occurrence: None)
  Receive Date: 20120810
  Receipt Date: 20120730
  Transmission Date: 20120928
  Serious: Yes (Other)
  Sender: FDA-Public Use
  Company Number: IT-BRISTOL-MYERS SQUIBB COMPANY-16680399

PATIENT
  Age: 91 Year
  Sex: Female

DRUGS (6)
  1. TRAMADOL HCL [Interacting]
  2. LEVOFLOXACIN [Interacting]
     Indication: BACTERIAL INFECTION
     Route: 048
  3. GLYBURIDE [Interacting]
     Indication: TYPE 2 DIABETES MELLITUS
     Route: 048
  4. NADROPARINE [Interacting]
     Indication: CEREBROVASCULAR ACCIDENT
     Route: 058
  5. METFORMIN HCL [Suspect]
     Indication: TYPE 2 DIABETES MELLITUS
     Route: 048
  6. BUPRENORPHINE [Interacting]
     Indication: PAIN
     Route: 062

REACTIONS (2)
  - HYPOGLYCAEMIC COMA [None]
  - DRUG INTERACTION [None]
